FAERS Safety Report 7305051-5 (Version None)
Quarter: 2011Q1

REPORT INFORMATION
  Report Type: 
  Country: None (occurrence: None)
  Receive Date: 20110222
  Receipt Date: 20110211
  Transmission Date: 20110831
  Serious: Yes (Death)
  Sender: FDA-Public Use
  Company Number: US-CELGENEUS-163-21880-11011542

PATIENT
  Sex: Female

DRUGS (8)
  1. DIGOXIN [Concomitant]
     Route: 065
  2. DECADRON [Concomitant]
     Route: 065
     Dates: start: 20101130
  3. COZAAR [Concomitant]
     Route: 065
  4. PROTONIX [Concomitant]
     Route: 065
  5. ZOMETA [Concomitant]
     Route: 065
  6. REVLIMID [Suspect]
     Indication: MULTIPLE MYELOMA
     Route: 048
     Dates: start: 20101115, end: 20110102
  7. AGGRENOX [Concomitant]
     Route: 065
     Dates: start: 20101220
  8. CARDIZEM [Concomitant]
     Route: 065

REACTIONS (1)
  - CARDIO-RESPIRATORY ARREST [None]
